FAERS Safety Report 8354761-X (Version None)
Quarter: 2012Q2

REPORT INFORMATION
  Report Type: 
  Country: None (occurrence: None)
  Receive Date: 20120511
  Receipt Date: 20120509
  Transmission Date: 20120825
  Serious: Yes (Other)
  Sender: FDA-Public Use
  Company Number: CZ-GLAXOSMITHKLINE-B0800503A

PATIENT
  Age: 75 Year
  Sex: Male

DRUGS (5)
  1. LOCREN [Concomitant]
     Indication: HYPERTENSION
  2. PLAVIX [Concomitant]
     Indication: MYOCARDIAL ISCHAEMIA
  3. PRESTARIUM [Concomitant]
     Indication: HYPERTENSION
  4. DUTASTERIDE/TAMSULOSIN HYDROCHLORIDE [Suspect]
     Indication: BENIGN PROSTATIC HYPERPLASIA
     Dosage: 1CAP PER DAY
     Route: 048
     Dates: start: 20120412, end: 20120504
  5. MODURETIC 5-50 [Concomitant]
     Indication: HYPERTENSION

REACTIONS (1)
  - PSORIASIS [None]
